FAERS Safety Report 22322741 (Version 1)
Quarter: 2023Q2

REPORT INFORMATION
  Report Type: Report from Study
  Country: US (occurrence: None)
  Receive Date: 20230516
  Receipt Date: 20230516
  Transmission Date: 20230721
  Serious: Yes (Other)
  Sender: FDA-Public Use
  Company Number: US-ROCHE-3349581

PATIENT

DRUGS (13)
  1. RITUXIMAB [Suspect]
     Active Substance: RITUXIMAB
     Indication: Burkitt^s lymphoma
     Dosage: RECEIVED DOSE 700 MG ON 12/SEP/2014, 03/OCT/2014, 24/OCT/2014, 14/NOV/2014, 05/DEC/2014
     Route: 065
     Dates: start: 20140822, end: 20140822
  2. ETOPOSIDE [Suspect]
     Active Substance: ETOPOSIDE
     Indication: Burkitt^s lymphoma
     Dosage: RECEIVED DOSE 360 ON 12/SEP/2014
     Route: 065
     Dates: start: 20140822, end: 20140825
  3. ETOPOSIDE [Suspect]
     Active Substance: ETOPOSIDE
     Dosage: RECEIVED DOSE 400 MG ON 24/OCT/2014, 14/NOV/2014, 05/DEC/2014
     Route: 065
     Dates: start: 20141004, end: 20141007
  4. CYCLOPHOSPHAMIDE [Suspect]
     Active Substance: CYCLOPHOSPHAMIDE
     Indication: Burkitt^s lymphoma
     Route: 065
     Dates: start: 20140826, end: 20140826
  5. CYCLOPHOSPHAMIDE [Suspect]
     Active Substance: CYCLOPHOSPHAMIDE
     Route: 065
     Dates: start: 20140916, end: 20140916
  6. CYCLOPHOSPHAMIDE [Suspect]
     Active Substance: CYCLOPHOSPHAMIDE
     Dosage: RECEIVED DOSE 1620 MG ON 28/OCT/2014, 18/NOV/2014, 09/DEC/2014
     Route: 065
     Dates: start: 20141008, end: 20141008
  7. DOXORUBICIN [Suspect]
     Active Substance: DOXORUBICIN
     Indication: Burkitt^s lymphoma
     Dosage: RECEIVED DOSE ON 12/SEP/2014
     Route: 065
     Dates: start: 20140822, end: 20140825
  8. DOXORUBICIN [Suspect]
     Active Substance: DOXORUBICIN
     Dosage: RECEIVED DOSE 88 MG ON 24/OCT/2014, 14/NOV/2014, 05/DEC/2014
     Route: 065
     Dates: start: 20141004, end: 20141007
  9. FILGRASTIM [Suspect]
     Active Substance: FILGRASTIM
     Indication: Burkitt^s lymphoma
     Dosage: RECEIVED DOSE 4800 MCG ON 17/SEP/2014, 09/OCT/2014, 29/OCT/2014, 19/NOV/2014, 10/DEC/2014
     Route: 065
     Dates: start: 20140828, end: 20140910
  10. METHOTREXATE [Suspect]
     Active Substance: METHOTREXATE
     Indication: Burkitt^s lymphoma
     Dosage: RECEIVED DOSES 12 MG ON 07/OCT/2014, 28/OCT/2014, 24/OCT/2014, 19/NOV/2014, 14/NOV/2014, 06/DEC/2014
     Route: 065
     Dates: start: 20141003, end: 20141003
  11. PREDNISONE [Suspect]
     Active Substance: PREDNISONE
     Indication: Burkitt^s lymphoma
     Dosage: RECEIVED DOSE 1000 MG ON 03/OCT/2014, 24/OCT/2014, 14/NOV/2014, 05/DEC/2014
     Route: 065
     Dates: start: 20140822, end: 20140826
  12. PREDNISONE [Suspect]
     Active Substance: PREDNISONE
     Route: 065
     Dates: start: 20140912, end: 20140917
  13. VINCRISTINE [Suspect]
     Active Substance: VINCRISTINE
     Indication: Burkitt^s lymphoma
     Dosage: RECEIVED DOSE ON 12/SEP/2014, 04/OCT/2014, 24/OCT/2014, 14/NOV/2014, 05/DEC/2014
     Route: 065
     Dates: start: 20140822, end: 20140822

REACTIONS (1)
  - White blood cell count decreased [Recovered/Resolved]

NARRATIVE: CASE EVENT DATE: 20141124
